FAERS Safety Report 13591918 (Version 1)
Quarter: 2017Q2

REPORT INFORMATION
  Report Type: Spontaneous
  Country: FR (occurrence: FR)
  Receive Date: 20170530
  Receipt Date: 20170530
  Transmission Date: 20170830
  Serious: Yes (Hospitalization)
  Sender: FDA-Public Use
  Company Number: FR-PFIZER INC-2017228296

PATIENT
  Age: 47 Year
  Sex: Female

DRUGS (4)
  1. ZOPHREN [Suspect]
     Active Substance: ONDANSETRON
     Dosage: 2 DF, 1X/DAY AS NEEDED
     Route: 048
     Dates: start: 20131024, end: 20131025
  2. SOLUPRED [Suspect]
     Active Substance: PREDNISOLONE
     Dosage: 25 MG, 2X/DAY
     Route: 048
     Dates: start: 20131023, end: 20131025
  3. DOCETAXEL. [Suspect]
     Active Substance: DOCETAXEL
     Indication: BREAST CANCER
     Dosage: 100 MG/M2, CYCLIC
     Route: 042
     Dates: start: 20131024, end: 20131024
  4. GRANOCYTE [Suspect]
     Active Substance: LENOGRASTIM
     Dosage: 34 MILLION IU, 1X/DAY
     Route: 058
     Dates: start: 20131025, end: 20131101

REACTIONS (2)
  - Hepatocellular injury [Recovering/Resolving]
  - Cholestasis [Recovering/Resolving]

NARRATIVE: CASE EVENT DATE: 20131030
